FAERS Safety Report 4958274-4 (Version None)
Quarter: 2006Q1

REPORT INFORMATION
  Report Type: 
  Country: None (occurrence: None)
  Receive Date: 20060324
  Receipt Date: 20060309
  Transmission Date: 20060701
  Serious: Yes (Death)
  Sender: FDA-Public Use
  Company Number: 2006-00542

PATIENT
  Age: 75 Year
  Sex: Female

DRUGS (5)
  1. VELCADE [Suspect]
     Indication: MULTIPLE MYELOMA
     Dosage: 210 MG, 2/WEEK, INTRAVENOUS
     Route: 042
  2. CLODRONATE DISODIUM (CLODRONATE DISODIUM) [Concomitant]
  3. ALLOPURINOL [Concomitant]
  4. AMLODIPINE [Concomitant]
  5. LOPERAMIDE HCL [Concomitant]

REACTIONS (12)
  - ANAEMIA [None]
  - CARDIAC ENZYMES INCREASED [None]
  - DIARRHOEA [None]
  - HAEMATEMESIS [None]
  - HYPOTHERMIA [None]
  - MALIGNANT NEOPLASM PROGRESSION [None]
  - MULTIPLE MYELOMA [None]
  - NEUTROPENIA [None]
  - RECTAL HAEMORRHAGE [None]
  - RENAL IMPAIRMENT [None]
  - SEPSIS [None]
  - THROMBOCYTOPENIA [None]
